FAERS Safety Report 10548271 (Version 2)
Quarter: 2014Q4

REPORT INFORMATION
  Report Type: Spontaneous
  Country: PT (occurrence: PT)
  Receive Date: 20141028
  Receipt Date: 20141221
  Transmission Date: 20150529
  Serious: Yes (Hospitalization, Other)
  Sender: FDA-Public Use
  Company Number: PT-GLAXOSMITHKLINE-PT2014GSK008732

PATIENT
  Age: 82 Year
  Sex: Male

DRUGS (7)
  1. HERBAL TEA [Concomitant]
  2. PAZOPANIB [Suspect]
     Active Substance: PAZOPANIB
     Dosage: 800 MG, UNK
     Dates: start: 20140916
  3. PAZOPANIB [Suspect]
     Active Substance: PAZOPANIB
     Indication: PRODUCT USED FOR UNKNOWN INDICATION
     Dosage: UNK
     Dates: start: 201409, end: 20141015
  4. HERBAL TEA [Concomitant]
  5. LISINOPRIL. [Concomitant]
     Active Substance: LISINOPRIL
     Indication: HYPERTENSION
  6. CHLORTHALIDONE. [Concomitant]
     Active Substance: CHLORTHALIDONE
     Indication: HYPERTENSION
  7. HERBAL TEAS [Concomitant]
     Active Substance: HERBALS

REACTIONS (2)
  - Hepatitis toxic [Unknown]
  - Transaminases increased [Unknown]

NARRATIVE: CASE EVENT DATE: 201409
